FAERS Safety Report 13492834 (Version 12)
Quarter: 2017Q4

REPORT INFORMATION
  Report Type: Report from Study
  Country: CR (occurrence: CR)
  Receive Date: 20170427
  Receipt Date: 20171206
  Transmission Date: 20180320
  Serious: Yes (Hospitalization, Disabling, Other)
  Sender: FDA-Public Use
  Company Number: PHHY2015CR102611

PATIENT
  Age: 62 Year
  Sex: Male
  Weight: 89.8 kg

DRUGS (6)
  1. TASIGNA [Suspect]
     Active Substance: NILOTINIB
     Indication: CHRONIC MYELOID LEUKAEMIA
     Dosage: 2 DF, BID (2 IN AM AND 2 IN PM)
     Route: 065
     Dates: start: 201401
  2. TASIGNA [Suspect]
     Active Substance: NILOTINIB
     Dosage: 2 DF, BID (5 IN AM AND 5 IN PM)
     Route: 065
  3. TASIGNA [Suspect]
     Active Substance: NILOTINIB
     Dosage: 400 MG, QD
     Route: 065
  4. IRBESARTAN. [Concomitant]
     Active Substance: IRBESARTAN
     Indication: PRODUCT USED FOR UNKNOWN INDICATION
     Dosage: 150 MG, QD
     Route: 048
  5. TASIGNA [Suspect]
     Active Substance: NILOTINIB
     Dosage: 200 MG, UNK
     Route: 065
  6. TASIGNA [Suspect]
     Active Substance: NILOTINIB
     Dosage: 200 MG, BID (1 IN THE MORNING AND ONE AT NIGHT)
     Route: 065
     Dates: end: 20171030

REACTIONS (25)
  - Speech disorder [Unknown]
  - Asthenia [Unknown]
  - Eating disorder [Unknown]
  - Pain in extremity [Unknown]
  - Fatigue [Unknown]
  - Peripheral swelling [Recovering/Resolving]
  - Renal failure [Unknown]
  - Renal impairment [Unknown]
  - Limb injury [Unknown]
  - Grip strength decreased [Unknown]
  - Poor quality sleep [Unknown]
  - Testicular swelling [Unknown]
  - Pain [Not Recovered/Not Resolved]
  - Joint swelling [Unknown]
  - Malaise [Unknown]
  - Depressed mood [Unknown]
  - Gastric disorder [Unknown]
  - Cerebrovascular accident [Unknown]
  - Renal injury [Unknown]
  - Musculoskeletal pain [Unknown]
  - Hypoaesthesia [Not Recovered/Not Resolved]
  - Anxiety [Unknown]
  - Muscular weakness [Recovering/Resolving]
  - Anaemia [Unknown]
  - Gait disturbance [Recovering/Resolving]
